FAERS Safety Report 8258584-1 (Version None)
Quarter: 2012Q2

REPORT INFORMATION
  Report Type: 
  Country: None (occurrence: None)
  Receive Date: 20120403
  Receipt Date: 20120403
  Transmission Date: 20120825
  Serious: Yes (Death)
  Sender: FDA-Public Use
  Company Number: None

PATIENT
  Age: 66 Year
  Sex: Female

DRUGS (8)
  1. HYDOCODONE/APAP [Concomitant]
  2. GABAPENTIN [Concomitant]
  3. LATANOPROST [Concomitant]
  4. REVLIMID [Suspect]
     Indication: MYELODYSPLASTIC SYNDROME
     Dosage: REVLIMID 10MG EVERY OTHER DAY ORALLY
     Route: 048
     Dates: start: 20101201, end: 20111101
  5. FUROSEMIDE [Concomitant]
  6. CYMBALTA [Concomitant]
  7. ROPINIROLE [Concomitant]
  8. CARVEDILOL [Concomitant]

REACTIONS (3)
  - GENERAL PHYSICAL HEALTH DETERIORATION [None]
  - URINARY TRACT INFECTION [None]
  - PANCYTOPENIA [None]
